FAERS Safety Report 23176983 (Version 4)
Quarter: 2025Q2

REPORT INFORMATION
  Report Type: Spontaneous
  Country: GB (occurrence: GB)
  Receive Date: 20231113
  Receipt Date: 20250605
  Transmission Date: 20250716
  Serious: Yes (Other)
  Sender: REGENERON
  Company Number: GB-SA-SAC20231107000006

PATIENT
  Age: 74 Year
  Sex: Male

DRUGS (2)
  1. PRALUENT [Suspect]
     Active Substance: ALIROCUMAB
     Indication: Type IIa hyperlipidaemia
  2. PRALUENT [Suspect]
     Active Substance: ALIROCUMAB
     Dosage: 300 MG, Q4W, SOLUTION FOR INJECTION
     Route: 058

REACTIONS (4)
  - Parkinson^s disease [Unknown]
  - Memory impairment [Unknown]
  - Inappropriate schedule of product administration [Unknown]
  - Therapeutic response decreased [Unknown]
